FAERS Safety Report 5359420-3 (Version None)
Quarter: 2007Q2

REPORT INFORMATION
  Report Type: 
  Country: None (occurrence: None)
  Receive Date: 20070615
  Receipt Date: 20070606
  Transmission Date: 20071010
  Serious: Yes (Hospitalization)
  Sender: FDA-Public Use
  Company Number: BE-ABBOTT-07P-013-0370743-00

PATIENT
  Sex: Female

DRUGS (10)
  1. HUMIRA [Suspect]
     Indication: RHEUMATOID ARTHRITIS
     Route: 058
     Dates: start: 20061003
  2. METHYLPREDNISOLONE 16MG TAB [Concomitant]
     Indication: RHEUMATOID ARTHRITIS
  3. TRAMADOL HCL [Concomitant]
     Indication: DRUG USE FOR UNKNOWN INDICATION
  4. PARACETAMOL [Concomitant]
     Indication: DRUG USE FOR UNKNOWN INDICATION
  5. MELOXICAM [Concomitant]
     Indication: DRUG USE FOR UNKNOWN INDICATION
  6. NULYTELY [Concomitant]
     Indication: DRUG USE FOR UNKNOWN INDICATION
  7. MIRTAZAPINE [Concomitant]
     Indication: DRUG USE FOR UNKNOWN INDICATION
     Dosage: SOLTABS
  8. STAURODORM [Concomitant]
     Indication: DRUG USE FOR UNKNOWN INDICATION
  9. LEKOVIT CA [Concomitant]
     Indication: DRUG USE FOR UNKNOWN INDICATION
     Dosage: 500/440
     Dates: start: 20061201
  10. HYDROCORTISONE SODIUM SUCCINATE [Concomitant]
     Indication: PROPHYLAXIS
     Route: 042

REACTIONS (17)
  - ANAEMIA [None]
  - ANURIA [None]
  - CARDIAC MURMUR [None]
  - COUGH [None]
  - DEHYDRATION [None]
  - DYSPNOEA [None]
  - GASTRIC ULCER [None]
  - HYPERTROPHIC CARDIOMYOPATHY [None]
  - HYPOXIA [None]
  - MOBILITY DECREASED [None]
  - PNEUMONIA [None]
  - PROTEUS INFECTION [None]
  - PYREXIA [None]
  - RENAL FAILURE ACUTE [None]
  - SEPTIC SHOCK [None]
  - URINARY TRACT INFECTION [None]
  - UROSEPSIS [None]
